APPROVED DRUG PRODUCT: NICORETTE
Active Ingredient: NICOTINE POLACRILEX
Strength: EQ 2MG BASE
Dosage Form/Route: TROCHE/LOZENGE;ORAL
Application: N022360 | Product #001
Applicant: HALEON US HOLDINGS LLC
Approved: May 18, 2009 | RLD: Yes | RS: No | Type: OTC

PATENTS:
Patent 8940772 | Expires: Apr 30, 2029
Patent 8501164 | Expires: Jun 14, 2029